FAERS Safety Report 8816878 (Version 1)
Quarter: 2012Q4

REPORT INFORMATION
  Report Type: Spontaneous
  Country: US (occurrence: None)
  Receive Date: 20121002
  Receipt Date: 20121002
  Transmission Date: 20130627
  Serious: Yes (Other)
  Sender: FDA-Public Use
  Company Number: US-2012-11446

PATIENT
  Age: 18 Year
  Sex: Male

DRUGS (1)
  1. BUSULFEX [Suspect]
     Indication: BONE MARROW TRANSPLANT
     Route: 042

REACTIONS (4)
  - Urogenital haemorrhage [None]
  - Pollakiuria [None]
  - Dysuria [None]
  - Fatigue [None]
